FAERS Safety Report 20715916 (Version 3)
Quarter: 2022Q3

REPORT INFORMATION
  Report Type: Spontaneous
  Country: None (occurrence: CA)
  Receive Date: 20220415
  Receipt Date: 20220930
  Transmission Date: 20221027
  Serious: Yes (Death, Hospitalization)
  Sender: FDA-Public Use
  Company Number: CA-Canton Laboratories, LLC-2127837

PATIENT
  Age: 30 Year
  Sex: Male

DRUGS (19)
  1. NAPROSYN [Suspect]
     Active Substance: NAPROXEN
     Indication: Product used for unknown indication
     Route: 065
  2. DIAZEPAM [Suspect]
     Active Substance: DIAZEPAM
  3. NAPROXEN SODIUM [Suspect]
     Active Substance: NAPROXEN SODIUM
  4. CLONAZEPAM [Suspect]
     Active Substance: CLONAZEPAM
  5. METHYLPHENIDATE HYDROCHLORIDE [Suspect]
     Active Substance: METHYLPHENIDATE HYDROCHLORIDE
  6. NORTRIPTYLINE HYDROCHLORIDE [Suspect]
     Active Substance: NORTRIPTYLINE HYDROCHLORIDE
  7. OXAZEPAM [Suspect]
     Active Substance: OXAZEPAM
  8. PREGABALIN [Suspect]
     Active Substance: PREGABALIN
  9. TEMAZEPAM [Suspect]
     Active Substance: TEMAZEPAM
  10. METHYLPHENIDATE [Suspect]
     Active Substance: METHYLPHENIDATE
  11. OXYCODONE. [Concomitant]
     Active Substance: OXYCODONE HYDROCHLORIDE
  12. NAPROSYN [Suspect]
     Active Substance: NAPROXEN
  13. BENZOYLECGONINE [Suspect]
     Active Substance: BENZOYLECGONINE
  14. DRONABINOL [Suspect]
     Active Substance: DRONABINOL
  15. RIVOTRIL [Suspect]
     Active Substance: CLONAZEPAM
  16. BENZOYLECGONINE [Suspect]
     Active Substance: BENZOYLECGONINE
  17. ANAPROX [Suspect]
     Active Substance: NAPROXEN SODIUM
  18. COCAETHYLENE [Suspect]
     Active Substance: COCAETHYLENE
  19. FURANYLFENTANYL [Suspect]
     Active Substance: FURANYLFENTANYL

REACTIONS (6)
  - Cardio-respiratory arrest [Fatal]
  - Drug abuse [Fatal]
  - Overdose [Fatal]
  - Toxicity to various agents [Fatal]
  - Poisoning [Fatal]
  - Product use in unapproved indication [Fatal]
